FAERS Safety Report 4602346-0 (Version None)
Quarter: 2005Q2

REPORT INFORMATION
  Report Type: 
  Country: None (occurrence: None)
  Receive Date: 20050223
  Receipt Date: 20041130
  Transmission Date: 20051028
  Serious: Yes (Life-Threatening, Hospitalization)
  Sender: FDA-Public Use
  Company Number: 210806

PATIENT
  Age: 54 Year
  Sex: Male
  Weight: 54.6 kg

DRUGS (2)
  1. RAPTIVA [Suspect]
     Indication: PSORIASIS
     Dosage: 1.2 ML, 1/WEEK, SUBCUTANEOUS
     Route: 058
     Dates: start: 20021101, end: 20040825
  2. ALLOPURINOL [Concomitant]

REACTIONS (1)
  - SEPSIS [None]
